FAERS Safety Report 5050415-6 (Version None)
Quarter: 2006Q3

REPORT INFORMATION
  Report Type: 
  Country: None (occurrence: None)
  Receive Date: 20060707
  Receipt Date: 20060627
  Transmission Date: 20061208
  Serious: Yes (Life-Threatening, Hospitalization, Disabling, Other)
  Sender: FDA-Public Use
  Company Number: 2005JP001764

PATIENT
  Age: 9 Year
  Sex: Female
  Weight: 39 kg

DRUGS (9)
  1. PROGRAF [Suspect]
     Indication: BONE MARROW TRANSPLANT
     Dosage: 1 MG, D, IV DRIP
     Route: 041
     Dates: start: 20050807, end: 20050820
  2. FUNGUARD (MICAFUNGIN) [Concomitant]
  3. VICCLOX (ACICLOVIR) [Concomitant]
  4. MAXIPIME [Concomitant]
  5. SOLU-MEDROL [Concomitant]
  6. FRAGMIN [Concomitant]
  7. DOPAMINE HYDROCHLORIDE [Concomitant]
  8. URSO 250 [Concomitant]
  9. ITRACONAZOLE [Concomitant]

REACTIONS (13)
  - BLEPHAROSPASM [None]
  - CONVULSION [None]
  - DEPRESSED LEVEL OF CONSCIOUSNESS [None]
  - DYSPNOEA [None]
  - ENCEPHALOPATHY [None]
  - EYE MOVEMENT DISORDER [None]
  - FEELING ABNORMAL [None]
  - HEARING IMPAIRED [None]
  - MEMORY IMPAIRMENT [None]
  - NYSTAGMUS [None]
  - THERAPY NON-RESPONDER [None]
  - VISUAL DISTURBANCE [None]
  - VOMITING [None]
